FAERS Safety Report 7505632-X (Version None)
Quarter: 2011Q2

REPORT INFORMATION
  Report Type: 
  Country: None (occurrence: None)
  Receive Date: 20110526
  Receipt Date: 20110523
  Transmission Date: 20111010
  Serious: Yes (Other)
  Sender: FDA-Public Use
  Company Number: US-PFIZER INC-2011110775

PATIENT
  Sex: Female
  Weight: 117.01 kg

DRUGS (4)
  1. FENTANYL [Concomitant]
     Dosage: UNK
  2. PERCOCET [Concomitant]
     Dosage: UNK
  3. NAPROSYN [Concomitant]
     Dosage: UNK
  4. LYRICA [Suspect]
     Indication: NEURALGIA
     Dosage: 75 MG, 2X/DAY
     Route: 048
     Dates: start: 20110510

REACTIONS (2)
  - OEDEMA PERIPHERAL [None]
  - TENDON DISORDER [None]
